FAERS Safety Report 6099236-6 (Version None)
Quarter: 2009Q1

REPORT INFORMATION
  Report Type: 
  Country: None (occurrence: None)
  Receive Date: 20090303
  Receipt Date: 20090224
  Transmission Date: 20090719
  Serious: Yes (Other)
  Sender: FDA-Public Use
  Company Number: JP-JNJFOC-20090206057

PATIENT
  Age: 60 Year
  Sex: Male

DRUGS (7)
  1. FENTANYL [Suspect]
     Indication: PAIN
     Route: 062
  2. LOXOPROFEN SODIUM [Concomitant]
     Route: 065
  3. FENTANYL CITRATE [Concomitant]
     Route: 065
  4. ACETAMINOPHEN [Concomitant]
     Route: 065
  5. CLONAZEPAM [Concomitant]
     Route: 048
  6. OXYCODONE HYDROCHLORIDE [Concomitant]
     Route: 065
  7. BETAMETHASONE [Concomitant]
     Route: 065

REACTIONS (2)
  - DELIRIUM [None]
  - SOMNOLENCE [None]
